FAERS Safety Report 4511437-4 (Version None)
Quarter: 2004Q4

REPORT INFORMATION
  Report Type: 
  Country: None (occurrence: None)
  Receive Date: 20041129
  Receipt Date: 20040811
  Transmission Date: 20050328
  Serious: No
  Sender: FDA-Public Use
  Company Number: US-BRISTOL-MYERS SQUIBB COMPANY-12667887

PATIENT
  Age: 8 Year
  Sex: Male
  Weight: 77 kg

DRUGS (2)
  1. ABILIFY [Suspect]
     Indication: BIPOLAR DISORDER
     Route: 048
     Dates: start: 20040301
  2. STRATTERA [Concomitant]
     Dates: start: 20040301

REACTIONS (5)
  - ENCOPRESIS [None]
  - ENURESIS [None]
  - MUSCLE CONTRACTURE [None]
  - SLEEP DISORDER [None]
  - TIC [None]
